FAERS Safety Report 9292632 (Version 2)
Quarter: 2013Q3

REPORT INFORMATION
  Report Type: Spontaneous
  Country: US (occurrence: US)
  Receive Date: 20130516
  Receipt Date: 20130913
  Transmission Date: 20140515
  Serious: Yes (Other)
  Sender: FDA-Public Use
  Company Number: PHEH2013US010549

PATIENT
  Sex: Female

DRUGS (9)
  1. RECLAST [Suspect]
     Dosage: UNK UKN, UNK
     Route: 042
  2. RECLAST [Suspect]
     Dosage: UNK UKN, UNK
     Route: 042
  3. RECLAST [Suspect]
     Dosage: UNK UKN, UNK
     Route: 042
  4. RECLAST [Suspect]
     Dosage: UNK UKN, UNK
     Route: 042
     Dates: start: 201202
  5. CALCIUM [Concomitant]
     Dosage: UNK
  6. IRON [Concomitant]
  7. VITAMIN D [Concomitant]
     Dosage: UNK UKN, UNK
  8. MAGNESIUM [Concomitant]
     Dosage: UNK UKN, UNK
  9. MULTI-VIT [Concomitant]
     Dosage: UNK UKN, UNK

REACTIONS (5)
  - Herpes zoster [Unknown]
  - Pain [Unknown]
  - Pruritus [Unknown]
  - Calcinosis [Unknown]
  - Fall [Unknown]
